FAERS Safety Report 8360857-9 (Version None)
Quarter: 2012Q2

REPORT INFORMATION
  Report Type: 
  Country: None (occurrence: None)
  Receive Date: 20120515
  Receipt Date: 20120501
  Transmission Date: 20120825
  Serious: Yes (Hospitalization)
  Sender: FDA-Public Use
  Company Number: GB-AMGEN-GBRCT2012018696

PATIENT
  Age: 43 Year
  Sex: Female
  Weight: 183 kg

DRUGS (6)
  1. DEPO-PROVERA [Concomitant]
     Dosage: UNK
     Dates: start: 20100207
  2. VERAPAMIL [Concomitant]
     Dosage: UNK
     Dates: start: 20110316
  3. ETANERCEPT [Suspect]
     Indication: PRODUCT USED FOR UNKNOWN INDICATION
     Dosage: 50 MG, QWK
     Dates: start: 20100615
  4. CITALOPRAM HYDROBROMIDE [Concomitant]
     Dosage: UNK
     Dates: start: 20100207
  5. FLECAINIDE ACETATE [Concomitant]
     Dosage: UNK
     Dates: start: 20110316
  6. TOLTERODINE TARTRATE [Concomitant]
     Dosage: UNK

REACTIONS (1)
  - ATRIAL FIBRILLATION [None]
